FAERS Safety Report 19094626 (Version 1)
Quarter: 2021Q2

REPORT INFORMATION
  Report Type: Spontaneous
  Country: FR (occurrence: FR)
  Receive Date: 20210405
  Receipt Date: 20210405
  Transmission Date: 20210717
  Serious: No
  Sender: FDA-Public Use
  Company Number: FR-JAZZ-2021-FR-002869

PATIENT
  Age: 37 Year
  Sex: Female

DRUGS (4)
  1. WAKIX [Concomitant]
     Active Substance: PITOLISANT HYDROCHLORIDE
  2. SUNOSI [Suspect]
     Active Substance: SOLRIAMFETOL
     Indication: NARCOLEPSY
     Dosage: 150 MILLIGRAM, QD
  3. SUNOSI [Suspect]
     Active Substance: SOLRIAMFETOL
     Dosage: 75 MILLIGRAM, BID
  4. SUNOSI [Suspect]
     Active Substance: SOLRIAMFETOL
     Dosage: 75 MILLIGRAM, TID
     Route: 048

REACTIONS (4)
  - Irritability [Recovered/Resolved]
  - Therapeutic response shortened [Recovered/Resolved]
  - Prescribed overdose [Unknown]
  - Decreased appetite [Recovered/Resolved]
